FAERS Safety Report 13977660 (Version 1)
Quarter: 2017Q3

REPORT INFORMATION
  Report Type: Spontaneous
  Country: US (occurrence: US)
  Receive Date: 20170915
  Receipt Date: 20170915
  Transmission Date: 20171128
  Serious: No
  Sender: FDA-Public Use
  Company Number: US-BAYER-2017-171456

PATIENT
  Age: 50 Year

DRUGS (4)
  1. TITANIUM DIOXIDE. [Suspect]
     Active Substance: TITANIUM DIOXIDE
     Dosage: 11 MG, QD
     Dates: start: 20170719, end: 20170802
  2. ALEVE PM [Suspect]
     Active Substance: DIPHENHYDRAMINE HYDROCHLORIDE\NAPROXEN SODIUM
     Indication: JUVENILE IDIOPATHIC ARTHRITIS
  3. BENADRYL [Concomitant]
     Active Substance: DIPHENHYDRAMINE HYDROCHLORIDE
  4. ALEVE PM [Suspect]
     Active Substance: DIPHENHYDRAMINE HYDROCHLORIDE\NAPROXEN SODIUM
     Indication: PAIN
     Dosage: 11 MG, QD
     Dates: start: 20170719, end: 20170802

REACTIONS (8)
  - Headache [Recovered/Resolved]
  - Hypoaesthesia oral [Recovered/Resolved]
  - Oropharyngeal pain [Recovered/Resolved]
  - Rash macular [Recovered/Resolved]
  - Drug hypersensitivity [None]
  - Drug ineffective [None]
  - Vertigo [Recovered/Resolved]
  - Urticaria [Recovered/Resolved]

NARRATIVE: CASE EVENT DATE: 2017
